FAERS Safety Report 7688397-0 (Version None)
Quarter: 2011Q3

REPORT INFORMATION
  Report Type: 
  Country: None (occurrence: None)
  Receive Date: 20110817
  Receipt Date: 20110809
  Transmission Date: 20111222
  Serious: Yes (Life-Threatening, Hospitalization)
  Sender: FDA-Public Use
  Company Number: GB-ROCHE-790736

PATIENT
  Age: 69 Year
  Sex: Male
  Weight: 80.3 kg

DRUGS (21)
  1. ACTEMRA [Suspect]
     Route: 042
     Dates: start: 20110519, end: 20110714
  2. METFORMIN HCL [Concomitant]
     Route: 048
  3. LIDOCAINE [Concomitant]
     Dosage: PLASTER
  4. ALBUTEROL [Concomitant]
     Route: 055
  5. MONTELUKAST SODIUM [Concomitant]
  6. NITROGLYCERIN [Concomitant]
     Route: 060
  7. LOSARTAN POTASSIUM [Concomitant]
  8. SERETIDE [Concomitant]
  9. CLONAZEPAM [Concomitant]
  10. MIRTAZAPINE [Concomitant]
  11. SIMAVASTATIN [Concomitant]
  12. LANSOPRAZOLE [Concomitant]
     Indication: PROPHYLAXIS
     Route: 048
  13. GLICLAZIDE [Concomitant]
     Route: 048
  14. AMINOPHYLLIN TAB [Concomitant]
     Dosage: DOSE REPORTED AS 500
     Route: 055
  15. GABAPENTIN [Concomitant]
  16. RAMIPRIL [Concomitant]
  17. ASPIRIN [Concomitant]
     Route: 048
  18. PREGABALIN [Concomitant]
     Dosage: 150 MG MORNING AND 200MG EVENING
  19. ISRADIPINE [Concomitant]
  20. CITALOPRAM HYDROBROMIDE [Concomitant]
  21. DIHYDROCODEINE BITARTRATE INJ [Concomitant]

REACTIONS (3)
  - BRADYCARDIA [None]
  - LOSS OF CONSCIOUSNESS [None]
  - PUPILLARY REFLEX IMPAIRED [None]
